FAERS Safety Report 6167525-2 (Version None)
Quarter: 2009Q2

REPORT INFORMATION
  Report Type: 
  Country: None (occurrence: None)
  Receive Date: 20090424
  Receipt Date: 20080522
  Transmission Date: 20091009
  Serious: No
  Sender: FDA-Public Use
  Company Number: A0730023A

PATIENT
  Age: 68 Year
  Sex: Male
  Weight: 84.1 kg

DRUGS (1)
  1. FLUTICASONE [Suspect]
     Indication: MULTIPLE ALLERGIES
     Dosage: 1SPR TWICE PER DAY
     Route: 045
     Dates: start: 20080424, end: 20080501

REACTIONS (4)
  - EPISTAXIS [None]
  - NASAL DISCOMFORT [None]
  - RASH [None]
  - RHINALGIA [None]
